FAERS Safety Report 8519562-8 (Version None)
Quarter: 2012Q3

REPORT INFORMATION
  Report Type: 
  Country: None (occurrence: None)
  Receive Date: 20120718
  Receipt Date: 20120709
  Transmission Date: 20120928
  Serious: Yes (Life-Threatening, Hospitalization, Congenital Anomaly, Other)
  Sender: FDA-Public Use
  Company Number: DE-TEVA-347663GER

PATIENT
  Sex: Female

DRUGS (2)
  1. FOLSAURE [Concomitant]
     Route: 064
  2. LAMOTRIGINE [Suspect]
     Route: 064

REACTIONS (6)
  - TALIPES [None]
  - ATRIAL SEPTAL DEFECT [None]
  - DYSMORPHISM [None]
  - NEONATAL RESPIRATORY DISTRESS SYNDROME [None]
  - BRADYCARDIA NEONATAL [None]
  - CONGENITAL URETERIC ANOMALY [None]
